FAERS Safety Report 11307130 (Version 1)
Quarter: 2015Q3

REPORT INFORMATION
  Report Type: Spontaneous
  Country: AR (occurrence: AR)
  Receive Date: 20150723
  Receipt Date: 20150723
  Transmission Date: 20151125
  Serious: Yes (Death, Hospitalization)
  Sender: FDA-Public Use
  Company Number: AR-INCYTE CORPORATION-2015IN003437

PATIENT
  Age: 75 Year
  Sex: Female

DRUGS (2)
  1. JAKAFI [Suspect]
     Active Substance: RUXOLITINIB
     Indication: MYELOFIBROSIS
     Dosage: 30 MG, QD
     Route: 065
     Dates: start: 20130115
  2. JAKAFI [Suspect]
     Active Substance: RUXOLITINIB
     Indication: MYELOFIBROSIS
     Dosage: 20 MG, QD
     Route: 065

REACTIONS (6)
  - Respiratory disorder [Unknown]
  - Anaemia [Unknown]
  - Meniscus injury [Unknown]
  - Cytopenia [Recovered/Resolved]
  - Death [Fatal]
  - Infection [Unknown]

NARRATIVE: CASE EVENT DATE: 201502
